FAERS Safety Report 7902519-5 (Version None)
Quarter: 2011Q4

REPORT INFORMATION
  Report Type: 
  Country: None (occurrence: None)
  Receive Date: 20111108
  Receipt Date: 20111026
  Transmission Date: 20120403
  Serious: Yes (Hospitalization, Other)
  Sender: FDA-Public Use
  Company Number: US-ELI_LILLY_AND_COMPANY-US201104006975

PATIENT
  Sex: Female

DRUGS (24)
  1. FORTEO [Suspect]
     Dosage: 20 UG, QD
     Route: 058
  2. FORTEO [Suspect]
     Dosage: 20 UG, QD
     Route: 058
  3. FORTEO [Suspect]
     Dosage: 20 UG, QD
     Route: 058
  4. SPIRIVA [Concomitant]
  5. PRAVASTATIN [Concomitant]
  6. RAMIPRIL [Concomitant]
  7. INSULIN [Concomitant]
  8. FORTEO [Suspect]
     Indication: OSTEOPOROSIS
     Dosage: 20 UG, QD
     Route: 058
  9. ENALAPRIL MALEATE [Concomitant]
  10. FLONASE [Concomitant]
  11. TOPROL-XL [Concomitant]
  12. ANAPRIL [Concomitant]
  13. FORTEO [Suspect]
     Dosage: 20 UG, QD
     Route: 058
  14. XANAX [Concomitant]
  15. PREDNISONE [Concomitant]
  16. ADVAIR DISKUS 100/50 [Concomitant]
  17. SINGULAIR [Concomitant]
  18. FORTEO [Suspect]
     Dosage: 20 UG, QD
     Route: 058
  19. AVELOX [Concomitant]
  20. CLARITIN [Concomitant]
  21. GLIPIZIDE [Concomitant]
  22. BYETTA [Concomitant]
  23. METOPROLOL [Concomitant]
  24. METFFORMIN HYDROCHLORIDE [Concomitant]

REACTIONS (13)
  - BLOOD GLUCOSE DECREASED [None]
  - HYPOAESTHESIA [None]
  - DYSPNOEA [None]
  - MEMORY IMPAIRMENT [None]
  - MENINGIOMA [None]
  - DIABETES MELLITUS [None]
  - RHEUMATOID ARTHRITIS [None]
  - BLOOD GLUCOSE INCREASED [None]
  - ARTHRALGIA [None]
  - CHRONIC OBSTRUCTIVE PULMONARY DISEASE [None]
  - MYALGIA [None]
  - NERVOUS SYSTEM DISORDER [None]
  - INJECTION SITE PAIN [None]
